FAERS Safety Report 4939975-0 (Version None)
Quarter: 2006Q1

REPORT INFORMATION
  Report Type: 
  Country: None (occurrence: None)
  Receive Date: 20060307
  Receipt Date: 20060224
  Transmission Date: 20060701
  Serious: Yes (Other)
  Sender: FDA-Public Use
  Company Number: 13457

PATIENT
  Age: 30 Year
  Sex: Female

DRUGS (2)
  1. MORPHINE [Suspect]
     Indication: PAIN
     Dosage: 1.5 MG ONCE EP
     Route: 008
  2. MORPHINE [Suspect]
     Indication: PAIN
     Dosage: 1 MG EP
     Route: 008

REACTIONS (2)
  - CLONUS [None]
  - CONVULSION [None]
